FAERS Safety Report 7800550-1 (Version None)
Quarter: 2011Q4

REPORT INFORMATION
  Report Type: 
  Country: None (occurrence: None)
  Receive Date: 20111006
  Receipt Date: 20110929
  Transmission Date: 20120403
  Serious: Yes (Other)
  Sender: FDA-Public Use
  Company Number: DK-PFIZER INC-2011159403

PATIENT
  Age: 46 Year
  Sex: Male
  Weight: 71 kg

DRUGS (5)
  1. CAVERJECT IMPULSE [Suspect]
     Dosage: 5 UG, UNK
  2. ACTRAPID [Concomitant]
     Dosage: UNK
  3. CAVERJECT IMPULSE [Suspect]
     Dosage: 2.5 UG, UNK
  4. RAMIPRIL [Concomitant]
     Dosage: 5 MG, UNK
  5. LEVEMIR [Concomitant]
     Dosage: UNK

REACTIONS (3)
  - ERECTION INCREASED [None]
  - DRUG INEFFECTIVE [None]
  - DRUG EFFECT INCREASED [None]
